FAERS Safety Report 17733582 (Version 1)
Quarter: 2020Q2

REPORT INFORMATION
  Report Type: Spontaneous
  Country: US (occurrence: US)
  Receive Date: 20200430
  Receipt Date: 20200430
  Transmission Date: 20200714
  Serious: Yes (Other)
  Sender: FDA-Public Use
  Company Number: None

PATIENT
  Age: 49 Year
  Sex: Female

DRUGS (10)
  1. OMEPRAZOLE 40MG [Concomitant]
     Active Substance: OMEPRAZOLE
     Dates: start: 20190910
  2. POTASSIUM CL 10MEQ ER TAB [Concomitant]
     Dates: start: 20181001
  3. VENLFAFAXINE ER 150 CAPS [Concomitant]
     Dates: start: 20181008
  4. PROMETHAZINE DM [Concomitant]
     Active Substance: DEXTROMETHORPHAN HYDROBROMIDE\PROMETHAZINE HYDROCHLORIDE
     Dates: start: 20200323
  5. NORCO [Concomitant]
     Active Substance: ACETAMINOPHEN\HYDROCODONE BITARTRATE
     Dates: start: 20190830
  6. PANTOPRAZOLE 20MG [Concomitant]
     Active Substance: PANTOPRAZOLE SODIUM
     Dates: start: 20200415
  7. PREDNISONE 20MG [Concomitant]
     Active Substance: PREDNISONE
     Dates: start: 20200428
  8. TASIGNA [Suspect]
     Active Substance: NILOTINIB
     Indication: LEUKAEMIA
     Route: 048
     Dates: start: 20200403, end: 20200427
  9. DOXYCYCLINE HYCLATE 100MG [Concomitant]
     Active Substance: DOXYCYCLINE HYCLATE
     Dates: start: 20200428
  10. ELIQUIS [Concomitant]
     Active Substance: APIXABAN
     Dates: start: 20200428

REACTIONS (2)
  - Therapy interrupted [None]
  - Fatigue [None]

NARRATIVE: CASE EVENT DATE: 20200422
